FAERS Safety Report 7735007-X (Version None)
Quarter: 2011Q3

REPORT INFORMATION
  Report Type: 
  Country: None (occurrence: None)
  Receive Date: 20110907
  Receipt Date: 20110319
  Transmission Date: 20111222
  Serious: No
  Sender: FDA-Public Use
  Company Number: US-BAYER-2011-025317

PATIENT
  Age: 21 Year
  Sex: Female

DRUGS (6)
  1. AUGMENTIN '125' [Concomitant]
     Indication: SINUSITIS
     Dosage: 875 MG, BID
     Dates: start: 20110317
  2. XANAX [Concomitant]
     Indication: DEPRESSION
  3. MIRENA [Suspect]
     Indication: CONTRACEPTION
     Dosage: 20 MCG/24HR, CONT
     Route: 015
     Dates: start: 20101101
  4. ZOLOFT [Concomitant]
     Indication: ANXIETY
     Dosage: 50 MG, QD
  5. XANAX [Concomitant]
     Indication: ANXIETY
     Dosage: 0.5 MG, PRN
  6. ZOLOFT [Concomitant]
     Indication: DEPRESSION

REACTIONS (3)
  - DEPRESSION [None]
  - SINUSITIS [None]
  - ANXIETY [None]
